FAERS Safety Report 18592403 (Version 1)
Quarter: 2020Q4

REPORT INFORMATION
  Report Type: Report from Study
  Country: US (occurrence: US)
  Receive Date: 20201209
  Receipt Date: 20201209
  Transmission Date: 20210114
  Serious: Yes (Death)
  Sender: FDA-Public Use
  Company Number: US-TAIHO ONCOLOGY  INC-EU-2020-04214

PATIENT
  Age: 62 Year
  Sex: Female
  Weight: 50.85 kg

DRUGS (6)
  1. HUMALOG KWIKPEN [Concomitant]
     Active Substance: INSULIN LISPRO
  2. METOPROLOL TARTRATE. [Concomitant]
     Active Substance: METOPROLOL TARTRATE
  3. LONSURF [Suspect]
     Active Substance: TIPIRACIL HYDROCHLORIDE\TRIFLURIDINE
     Indication: SMALL INTESTINE CARCINOMA
     Dosage: CYCLE UNKNOWN
     Route: 048
     Dates: start: 202005
  4. LISPRO KWIKPEN [Concomitant]
  5. MORPHINE SULFATE. [Concomitant]
     Active Substance: MORPHINE SULFATE
  6. FUROSEMIDE. [Concomitant]
     Active Substance: FUROSEMIDE

REACTIONS (2)
  - Intentional product use issue [Unknown]
  - Death [Fatal]

NARRATIVE: CASE EVENT DATE: 20201112
